FAERS Safety Report 8381226-1 (Version None)
Quarter: 2012Q2

REPORT INFORMATION
  Report Type: 
  Country: None (occurrence: None)
  Receive Date: 20120523
  Receipt Date: 20120515
  Transmission Date: 20120825
  Serious: Yes (Hospitalization)
  Sender: FDA-Public Use
  Company Number: NL-ABBOTT-12P-114-0935978-00

PATIENT
  Age: 41 Year
  Sex: Male

DRUGS (5)
  1. DEPAKENE [Suspect]
     Indication: EPILEPSY
     Dosage: TWICE DAILY
     Route: 048
     Dates: start: 20110101
  2. DEPAKENE [Suspect]
     Indication: SUICIDE ATTEMPT
     Route: 048
     Dates: start: 20120502
  3. LEVETIRACETAM [Suspect]
     Indication: EPILEPSY
     Dosage: TWICE DAILY
     Route: 048
     Dates: start: 20110101
  4. LEVETIRACETAM [Suspect]
     Dates: start: 20120502
  5. FRISIUM [Concomitant]
     Indication: PRODUCT USED FOR UNKNOWN INDICATION

REACTIONS (2)
  - SUICIDE ATTEMPT [None]
  - MULTIPLE DRUG OVERDOSE INTENTIONAL [None]
